FAERS Safety Report 7407025-2 (Version None)
Quarter: 2011Q2

REPORT INFORMATION
  Report Type: 
  Country: None (occurrence: None)
  Receive Date: 20110411
  Receipt Date: 20110131
  Transmission Date: 20111010
  Serious: Yes (Hospitalization, Other)
  Sender: FDA-Public Use
  Company Number: US-BAYER-201021147NA

PATIENT
  Age: 36 Year
  Sex: Female
  Weight: 54.422 kg

DRUGS (19)
  1. TYLENOL EXTRA STRENGTH [Concomitant]
  2. FLUCONAZOLE [Concomitant]
  3. OMEPRAZOLE [Concomitant]
  4. PROPOXYPHENE NAPSYLATE W/ ACETAMINOPHEN [Concomitant]
  5. OCELLA [Suspect]
     Indication: PRODUCT USED FOR UNKNOWN INDICATION
     Dosage: AS USED DOSE: UNK
     Route: 065
     Dates: start: 20071001
  6. MUCINEX [Concomitant]
  7. AMLODIPINE [Concomitant]
  8. CYMBALTA [Concomitant]
     Indication: DEPRESSION
     Dosage: UNK
     Dates: start: 20080101
  9. IBUPROFEN [Concomitant]
  10. CITALOPRAM [Concomitant]
  11. TOPAMAX [Concomitant]
     Dosage: UNK
     Dates: start: 19980101
  12. SPIRONOLACTONE [Concomitant]
     Dosage: UNK
     Dates: start: 20090601, end: 20090801
  13. CLONIDINE [Concomitant]
  14. RESTORIL [Concomitant]
  15. CIPROFLOXACIN [Concomitant]
  16. YAZ [Suspect]
     Indication: PRODUCT USED FOR UNKNOWN INDICATION
     Dosage: AS USED DOSE: UNK
     Route: 048
     Dates: start: 20071001
  17. PROMETHAZINE [Concomitant]
  18. METHYLPREDNISOLONE [Concomitant]
  19. YASMIN [Suspect]
     Indication: PRODUCT USED FOR UNKNOWN INDICATION
     Dosage: AS USED DOSE: UNK
     Route: 048
     Dates: start: 20071001

REACTIONS (4)
  - BILIARY COLIC [None]
  - CHOLECYSTITIS CHRONIC [None]
  - CEREBROVASCULAR ACCIDENT [None]
  - GALLBLADDER DISORDER [None]
